FAERS Safety Report 5088391-2 (Version None)
Quarter: 2006Q3

REPORT INFORMATION
  Report Type: 
  Country: None (occurrence: None)
  Receive Date: 20060822
  Receipt Date: 20060807
  Transmission Date: 20061208
  Serious: Yes (Hospitalization)
  Sender: FDA-Public Use
  Company Number: S06-SWE-03357-01

PATIENT
  Age: 33 Year
  Sex: Female

DRUGS (4)
  1. CITALOPRAM HYDROBROMIDE [Suspect]
     Indication: DEPRESSION
     Dosage: 20 MG QD PO
     Route: 048
     Dates: start: 20011130, end: 20020307
  2. EFFEXOR [Suspect]
     Indication: DEPRESSION
     Dosage: 75 MG QD PO
     Dates: start: 20020307, end: 20021201
  3. CLARITIN [Concomitant]
  4. PULMICORT [Concomitant]

REACTIONS (4)
  - COLITIS [None]
  - COLITIS ULCERATIVE [None]
  - HAEMATOCHEZIA [None]
  - PROCTITIS ULCERATIVE [None]
